FAERS Safety Report 8178837-5 (Version None)
Quarter: 2012Q1

REPORT INFORMATION
  Report Type: 
  Country: None (occurrence: None)
  Receive Date: 20120302
  Receipt Date: 20120217
  Transmission Date: 20120608
  Serious: Yes (Other)
  Sender: FDA-Public Use
  Company Number: TR-AMGEN-TURSP2012011325

PATIENT
  Age: 61 Year
  Sex: Male

DRUGS (2)
  1. LEVODOPA [Concomitant]
     Dosage: UNK
     Dates: start: 20120201
  2. ENBREL [Suspect]
     Indication: PSORIASIS
     Dosage: 50 MG, WEEKLY
     Route: 030
     Dates: start: 20101026, end: 20120215

REACTIONS (2)
  - PARKINSON'S DISEASE [None]
  - INCORRECT ROUTE OF DRUG ADMINISTRATION [None]
